FAERS Safety Report 6310952-0 (Version None)
Quarter: 2009Q3

REPORT INFORMATION
  Report Type: 
  Country: None (occurrence: None)
  Receive Date: 20090817
  Receipt Date: 20090811
  Transmission Date: 20100115
  Serious: Yes (Hospitalization)
  Sender: FDA-Public Use
  Company Number: US-BIOGENIDEC-2009BI016420

PATIENT
  Age: 40 Year
  Sex: Female

DRUGS (2)
  1. TYSABRI [Suspect]
     Indication: MULTIPLE SCLEROSIS
     Route: 042
     Dates: start: 20060822
  2. COUMADIN [Concomitant]
     Indication: DEEP VEIN THROMBOSIS

REACTIONS (3)
  - INTERNATIONAL NORMALISED RATIO INCREASED [None]
  - MIGRAINE [None]
  - PAIN IN EXTREMITY [None]
